FAERS Safety Report 25817295 (Version 3)
Quarter: 2025Q4

REPORT INFORMATION
  Report Type: Spontaneous
  Country: US (occurrence: US)
  Receive Date: 20250918
  Receipt Date: 20251022
  Transmission Date: 20260117
  Serious: Yes (Hospitalization, Other)
  Sender: PFIZER
  Company Number: US-PFIZER INC-202500183757

PATIENT
  Age: 77 Year
  Sex: Female

DRUGS (2)
  1. IBRANCE [Suspect]
     Active Substance: PALBOCICLIB
     Dosage: 125 MG, CYCLIC (125 MG DAILY IN THE MORNING FROM DAY 1-21 ON, 7 DAYS OFF)
     Route: 048
     Dates: end: 202509
  2. PROTONIX [Concomitant]
     Active Substance: PANTOPRAZOLE SODIUM
     Dosage: 40 MG, 1X/DAY (EVERY MORNING BEFORE BREAKFAST FOR 14 DAYS)
     Route: 048
     Dates: end: 20250914

REACTIONS (1)
  - Toe operation [Unknown]
